FAERS Safety Report 21928553 (Version 1)
Quarter: 2023Q1

REPORT INFORMATION
  Report Type: Spontaneous
  Country: US (occurrence: US)
  Receive Date: 20230130
  Receipt Date: 20230130
  Transmission Date: 20230418
  Serious: No
  Sender: FDA-Public Use
  Company Number: US-drreddys-SPO/USA/23/0159654

PATIENT
  Age: 78 Year
  Sex: Female

DRUGS (3)
  1. LENALIDOMIDE [Suspect]
     Active Substance: LENALIDOMIDE
     Indication: Plasma cell myeloma
     Dosage: EVERY DAY FOR 21 DAYS ON, THEN 7 DAYS OFF
     Route: 048
  2. LOSARTAN POT TAB 100MG [Concomitant]
     Indication: Product used for unknown indication
  3. ASPIRIN TBE 81MG [Concomitant]
     Indication: Product used for unknown indication
     Dosage: TBE

REACTIONS (1)
  - Limb discomfort [Not Recovered/Not Resolved]
